FAERS Safety Report 21160620 (Version 6)
Quarter: 2025Q1

REPORT INFORMATION
  Report Type: Report from Study
  Country: US (occurrence: US)
  Receive Date: 20220802
  Receipt Date: 20250228
  Transmission Date: 20250409
  Serious: Yes (Hospitalization, Other)
  Sender: RECORDATI
  Company Number: US-SAMOHPHARM-2022003616

PATIENT

DRUGS (29)
  1. CYSTADANE [Suspect]
     Active Substance: BETAINE
     Indication: Vitamin B12 deficiency
     Dosage: 1.5 GRAM, TID
     Route: 048
     Dates: start: 202011
  2. CYSTADANE [Suspect]
     Active Substance: BETAINE
     Indication: Anaemia
     Dosage: 1.5 GRAM, TID
     Route: 048
     Dates: start: 20210521
  3. CYSTADANE [Suspect]
     Active Substance: BETAINE
     Dosage: 1.5 GRAM, TID
     Route: 048
     Dates: start: 20210521
  4. ALBUTEROL SULFATE [Concomitant]
     Active Substance: ALBUTEROL SULFATE
     Indication: Asthma
  5. FAMOTIDINE [Concomitant]
     Active Substance: FAMOTIDINE
     Indication: Gastrooesophageal reflux disease
     Dosage: 5 MILLILITER, QD
  6. FAMOTIDINE [Concomitant]
     Active Substance: FAMOTIDINE
  7. LEVOCARNITINE [Concomitant]
     Active Substance: LEVOCARNITINE
     Indication: Carnitine deficiency
     Dosage: 10 MILLILITER, TID
  8. LEVOCARNITINE [Concomitant]
     Active Substance: LEVOCARNITINE
  9. PHENOBARBITAL [Concomitant]
     Active Substance: PHENOBARBITAL
     Indication: Tremor
     Dosage: 16.2 MILLIGRAM, BID
     Dates: end: 20220606
  10. K PHOS NEUTRAL [Concomitant]
     Active Substance: POTASSIUM PHOSPHATE, MONOBASIC\SODIUM PHOSPHATE, DIBASIC, ANHYDROUS\SODIUM PHOSPHATE, MONOBASIC, MON
     Indication: Blood phosphorus decreased
     Dosage: UNK, BID
  11. CYANOCOBALAMIN [Concomitant]
     Active Substance: CYANOCOBALAMIN
     Indication: Hypovitaminosis
     Dosage: 1 MILLILITER, QM (INJECTION)
  12. HYDROCORTISONE [Concomitant]
     Active Substance: HYDROCORTISONE
     Indication: Rash
  13. LEUCOVORIN CALCIUM [Concomitant]
     Active Substance: LEUCOVORIN CALCIUM
     Indication: Vitamin B12 deficiency
     Dosage: 10 MILLIGRAM, QD
  14. MIRALAX [Concomitant]
     Active Substance: POLYETHYLENE GLYCOL 3350
     Indication: Product used for unknown indication
  15. MELATONIN [Concomitant]
     Active Substance: MELATONIN
     Indication: Insomnia
     Dosage: 3 MILLIGRAM, QD (BEFORE BED TIME)
  16. BENADRYL [Concomitant]
     Active Substance: DIPHENHYDRAMINE HYDROCHLORIDE
     Indication: Product used for unknown indication
  17. IBUPROFEN [Concomitant]
     Active Substance: IBUPROFEN
     Indication: Product used for unknown indication
  18. PROPRANOLOL [Concomitant]
     Active Substance: PROPRANOLOL HYDROCHLORIDE
     Indication: Tremor
     Dosage: 0.3 MILLILITER, QD
  19. VITAMIN D [Concomitant]
     Active Substance: VITAMIN D NOS
     Indication: Hypovitaminosis
     Dosage: 1 MILLILITER, QD, DROPS
  20. FERROUS SULFATE [Concomitant]
     Active Substance: FERROUS SULFATE
     Indication: Iron deficiency
     Dosage: 5 MILLILITER, QD
  21. VITAMIN B12 [Concomitant]
     Active Substance: CYANOCOBALAMIN
     Indication: Product used for unknown indication
  22. VIGADRONE [Concomitant]
     Active Substance: VIGABATRIN
     Indication: Product used for unknown indication
  23. EPIPEN [Concomitant]
     Active Substance: EPINEPHRINE
     Indication: Product used for unknown indication
  24. DIASTAT [Concomitant]
     Active Substance: DIAZEPAM
     Indication: Product used for unknown indication
     Route: 054
  25. KEPPRA [Concomitant]
     Active Substance: LEVETIRACETAM
     Indication: Product used for unknown indication
  26. Poly vi sol [Concomitant]
     Indication: Product used for unknown indication
  27. PREDNISONE [Concomitant]
     Active Substance: PREDNISONE
     Indication: Product used for unknown indication
  28. TRILEPTAL [Concomitant]
     Active Substance: OXCARBAZEPINE
     Indication: Product used for unknown indication
  29. TRILEPTAL [Concomitant]
     Active Substance: OXCARBAZEPINE
     Dates: start: 202408

REACTIONS (6)
  - COVID-19 [Recovered/Resolved]
  - Seizure [Recovered/Resolved]
  - Seizure [Recovered/Resolved]
  - Generalised tonic-clonic seizure [Unknown]
  - Infection [Unknown]
  - Off label use [Recovered/Resolved]

NARRATIVE: CASE EVENT DATE: 20201101
